FAERS Safety Report 7230941-1 (Version None)
Quarter: 2011Q1

REPORT INFORMATION
  Report Type: 
  Country: None (occurrence: None)
  Receive Date: 20110118
  Receipt Date: 20110113
  Transmission Date: 20110831
  Serious: Yes (Other)
  Sender: FDA-Public Use
  Company Number: US-AMGEN-USASP2011002216

PATIENT

DRUGS (2)
  1. CHEMOTHERAPEUTICS NOS [Suspect]
  2. ARANESP [Suspect]
     Indication: ANAEMIA OF MALIGNANT DISEASE

REACTIONS (1)
  - NEOPLASM MALIGNANT [None]
